FAERS Safety Report 5015099-1 (Version None)
Quarter: 2006Q2

REPORT INFORMATION
  Report Type: 
  Country: None (occurrence: None)
  Receive Date: 20060425
  Receipt Date: 20051209
  Transmission Date: 20061013
  Serious: No
  Sender: FDA-Public Use
  Company Number: APP200500529

PATIENT
  Age: 62 Year
  Sex: Female
  Weight: 64.6 kg

DRUGS (1)
  1. HEPARIN SODIUM INJECTION [Suspect]
     Indication: COAGULOPATHY
     Dosage: 3000 USP UNITS, INTRAVENOUS
     Route: 042
     Dates: start: 20051206, end: 20051206

REACTIONS (1)
  - HAEMORRHAGE [None]
